FAERS Safety Report 8370628-5 (Version None)
Quarter: 2012Q2

REPORT INFORMATION
  Report Type: 
  Country: None (occurrence: None)
  Receive Date: 20120518
  Receipt Date: 20120507
  Transmission Date: 20120825
  Serious: Yes (Hospitalization, Disabling, Other)
  Sender: FDA-Public Use
  Company Number: US-ELI_LILLY_AND_COMPANY-US201205000124

PATIENT
  Sex: Female

DRUGS (6)
  1. HUMULIN N [Suspect]
     Dosage: 50 U, EACH MORNING
  2. METFORMIN HCL [Concomitant]
     Dosage: 500 MG, QD
  3. HUMALOG [Suspect]
     Dosage: UNK, PRN
  4. HUMALOG [Suspect]
     Dosage: UNK, PRN
  5. HUMULIN N [Suspect]
     Indication: DIABETES MELLITUS
     Dosage: 50 U, EACH MORNING
  6. HUMALOG [Suspect]
     Indication: DIABETES MELLITUS
     Dosage: UNK, PRN

REACTIONS (11)
  - BLOOD GLUCOSE INCREASED [None]
  - BLOOD GLUCOSE DECREASED [None]
  - POOR PERIPHERAL CIRCULATION [None]
  - FEAR [None]
  - PERIPHERAL COLDNESS [None]
  - VASCULAR GRAFT [None]
  - GANGRENE [None]
  - STENT PLACEMENT [None]
  - LYMPHATIC DISORDER [None]
  - FEELING ABNORMAL [None]
  - HYPOAESTHESIA [None]
